FAERS Safety Report 22834397 (Version 4)
Quarter: 2024Q1

REPORT INFORMATION
  Report Type: Report from Study
  Country: CA (occurrence: CA)
  Receive Date: 20230817
  Receipt Date: 20240213
  Transmission Date: 20240409
  Serious: Yes (Hospitalization, Other)
  Sender: FDA-Public Use
  Company Number: CA-ABBVIE-5369647

PATIENT
  Sex: Female

DRUGS (3)
  1. SKYRIZI [Suspect]
     Active Substance: RISANKIZUMAB-RZAA
     Indication: Crohn^s disease
     Route: 058
  2. SKYRIZI [Suspect]
     Active Substance: RISANKIZUMAB-RZAA
     Indication: Crohn^s disease
     Dosage: TIME INTERVAL: TOTAL: WEEK 0
     Route: 042
     Dates: start: 20230626, end: 20230626
  3. SKYRIZI [Suspect]
     Active Substance: RISANKIZUMAB-RZAA
     Indication: Crohn^s disease
     Dosage: TIME INTERVAL: TOTAL: WEEK 4 FIRST ADMIN DATE AND LAST ADMIN DATE WAS 2023C
     Route: 042

REACTIONS (9)
  - Abscess intestinal [Unknown]
  - Hernia [Unknown]
  - Crohn^s disease [Unknown]
  - Anaemia [Unknown]
  - Pain [Unknown]
  - Constipation [Unknown]
  - Anal abscess [Unknown]
  - Small intestinal resection [Unknown]
  - Transfusion [Unknown]

NARRATIVE: CASE EVENT DATE: 20230101
